FAERS Safety Report 9098917 (Version 4)
Quarter: 2014Q2

REPORT INFORMATION
  Report Type: Spontaneous
  Country: CO (occurrence: CO)
  Receive Date: 20130213
  Receipt Date: 20140605
  Transmission Date: 20141212
  Serious: Yes (Other)
  Sender: FDA-Public Use
  Company Number: CO-PFIZER INC-2013054688

PATIENT
  Age: 6 Year
  Sex: Male

DRUGS (3)
  1. GENOTROPIN [Suspect]
     Indication: SMALL FOR DATES BABY
     Dosage: 0.8MG AND 0.6MG, ALTERNATE DAY
     Route: 058
     Dates: start: 201106
  2. GENOTROPIN [Suspect]
     Indication: BODY HEIGHT BELOW NORMAL
  3. LEVOTHYROXINE [Concomitant]
     Indication: HYPOTHYROIDISM
     Dosage: 3/4 OF TABLET OF 50MG, 1X/DAY
     Route: 048
     Dates: start: 200703

REACTIONS (16)
  - Hearing impaired [Recovered/Resolved]
  - Haemorrhage [Recovered/Resolved]
  - Vomiting [Recovered/Resolved]
  - Tonsillar hypertrophy [Recovered/Resolved]
  - Ear disorder [Not Recovered/Not Resolved]
  - Testicular disorder [Not Recovered/Not Resolved]
  - Dyspnoea [Recovered/Resolved]
  - Snoring [Recovered/Resolved]
  - Bone pain [Not Recovered/Not Resolved]
  - Muscle spasms [Not Recovered/Not Resolved]
  - Hypersensitivity [Not Recovered/Not Resolved]
  - Pruritus [Not Recovered/Not Resolved]
  - Dry skin [Not Recovered/Not Resolved]
  - Headache [Not Recovered/Not Resolved]
  - Throat irritation [Not Recovered/Not Resolved]
  - Pyrexia [Not Recovered/Not Resolved]
